FAERS Safety Report 5891777-7 (Version None)
Quarter: 2008Q3

REPORT INFORMATION
  Report Type: 
  Country: None (occurrence: None)
  Receive Date: 20080908
  Receipt Date: 20080722
  Transmission Date: 20090109
  Serious: No
  Sender: FDA-Public Use
  Company Number: 002#3#2008-00591

PATIENT
  Age: 50 Year
  Sex: Male

DRUGS (1)
  1. NEUPRO [Suspect]
     Dosage: 4MG/24H, 2 IN 1 D, TRANSDERMAL
     Route: 062
     Dates: start: 20070821, end: 20071013

REACTIONS (2)
  - OVERDOSE [None]
  - PHARMACEUTICAL PRODUCT COMPLAINT [None]
